FAERS Safety Report 24083953 (Version 2)
Quarter: 2024Q3

REPORT INFORMATION
  Report Type: Spontaneous
  Country: US (occurrence: US)
  Receive Date: 20240712
  Receipt Date: 20240806
  Transmission Date: 20241016
  Serious: Yes (Disabling, Other)
  Sender: AMGEN
  Company Number: US-AMGEN-USASP2024136472

PATIENT
  Age: 76 Year
  Sex: Male

DRUGS (30)
  1. TEPEZZA [Suspect]
     Active Substance: TEPROTUMUMAB-TRBW
     Indication: Graves^ disease
     Dosage: 852 MILLIGRAM, Q3WK (FIRST INFUSION)
     Route: 042
     Dates: start: 20230424
  2. TEPEZZA [Suspect]
     Active Substance: TEPROTUMUMAB-TRBW
     Indication: Endocrine ophthalmopathy
     Dosage: 1704 MILLIGRAM, Q3WK (SECONF INFUSION)
     Route: 042
     Dates: start: 20230516, end: 20230516
  3. TEPEZZA [Suspect]
     Active Substance: TEPROTUMUMAB-TRBW
     Dosage: 1704 MILLIGRAM, Q3WK
     Route: 042
     Dates: start: 20230606, end: 20230606
  4. TEPEZZA [Suspect]
     Active Substance: TEPROTUMUMAB-TRBW
     Dosage: 1704 MILLIGRAM, Q3WK
     Route: 042
     Dates: start: 20230628, end: 20230628
  5. TEPEZZA [Suspect]
     Active Substance: TEPROTUMUMAB-TRBW
     Dosage: 1704 MILLIGRAM, Q3WK (FIFTH INFUSION)
     Route: 042
     Dates: start: 20230719, end: 20230719
  6. PREDNISONE [Suspect]
     Active Substance: PREDNISONE
     Indication: Product used for unknown indication
     Dosage: UNK
     Route: 065
  7. ACETAMINOPHEN [Concomitant]
     Active Substance: ACETAMINOPHEN
     Dosage: 650 MILLIGRAM, Q4H (TWO TABLETS)
     Route: 048
  8. ASPIRIN [Concomitant]
     Active Substance: ASPIRIN
     Dosage: 81 MILLIGRAM, QD
     Route: 048
  9. LIPITOR [Concomitant]
     Active Substance: ATORVASTATIN CALCIUM
     Dosage: 40 MILLIGRAM, QD
     Route: 048
     Dates: start: 20220331
  10. FLUTICASONE [Concomitant]
     Active Substance: FLUTICASONE
     Dosage: UNK (TWO SPARY)
     Route: 045
  11. GLIPIZIDE [Concomitant]
     Active Substance: GLIPIZIDE
     Dosage: 5 MILLIGRAM, QD
     Route: 048
     Dates: start: 20231016
  12. HYOSCYAMINE [Concomitant]
     Active Substance: HYOSCYAMINE
     Dosage: 0.125 MILLIGRAM, QD
     Route: 048
  13. LEVOTHYROXINE SODIUM [Concomitant]
     Active Substance: LEVOTHYROXINE SODIUM
     Dosage: 112 MICROGRAM, QD
     Route: 048
     Dates: start: 20220515
  14. METFORMIN [Concomitant]
     Active Substance: METFORMIN HYDROCHLORIDE
     Dosage: UNK
     Route: 065
     Dates: start: 20230628
  15. PANTOPRAZOLE [Concomitant]
     Active Substance: PANTOPRAZOLE
     Dosage: 40 MILLIGRAM, QD
     Route: 048
     Dates: start: 20220427
  16. VIAGRA [Concomitant]
     Active Substance: SILDENAFIL CITRATE
     Dosage: UNK
     Route: 065
     Dates: start: 20220515
  17. BACTRIM DS [Concomitant]
     Active Substance: SULFAMETHOXAZOLE\TRIMETHOPRIM
     Dosage: UNK UNK, QD
     Route: 048
  18. COENZYME Q10 [Concomitant]
     Active Substance: DIETARY SUPPLEMENT\UBIDECARENONE
     Dosage: UNK
     Route: 065
  19. SYSTANE (HYPROMELLOSE 2910 (4000 MPA.S)) [Concomitant]
     Active Substance: HYPROMELLOSE 2910 (4000 MPA.S)
     Dosage: UNK (4-5 DROPS PER DAY)
     Route: 065
  20. SELENIUM [Concomitant]
     Active Substance: SELENIUM
     Dosage: 100 MICROGRAM, BID
     Route: 065
  21. EPINEPHRINE [Concomitant]
     Active Substance: EPINEPHRINE
     Dosage: UNK
     Route: 065
  22. SOLU-MEDROL [Concomitant]
     Active Substance: METHYLPREDNISOLONE SODIUM SUCCINATE
     Dosage: UNK
     Route: 065
  23. BENADRYL [Concomitant]
     Active Substance: DIPHENHYDRAMINE HYDROCHLORIDE
     Dosage: UNK
     Route: 065
  24. PEPCID [Concomitant]
     Active Substance: FAMOTIDINE
     Dosage: UNK
     Route: 065
  25. SODIUM CHLORIDE [Concomitant]
     Active Substance: SODIUM CHLORIDE
     Dosage: UNK
     Route: 065
  26. Artificial tears [Concomitant]
     Dosage: UNK (4-5 TIMES A DAY)
     Route: 065
  27. PAXLOVID [Concomitant]
     Active Substance: NIRMATRELVIR\RITONAVIR
     Dosage: UNK
     Route: 065
  28. D5RL [Concomitant]
     Dosage: UNK
     Route: 042
  29. TROPICAMIDE [Concomitant]
     Active Substance: TROPICAMIDE
     Dosage: UNK
     Route: 065
  30. METAMUCIL [Concomitant]
     Active Substance: PLANTAGO SEED
     Dosage: UNK
     Route: 065

REACTIONS (55)
  - Deafness neurosensory [Not Recovered/Not Resolved]
  - Endocrine ophthalmopathy [Unknown]
  - Graves^ disease [Unknown]
  - Cataract nuclear [Unknown]
  - Corneal dystrophy [Unknown]
  - Punctate keratitis [Unknown]
  - Barrett^s oesophagus [Unknown]
  - Hypothyroidism [Unknown]
  - Syncope [Unknown]
  - Thrombocytopenia [Unknown]
  - Type 2 diabetes mellitus [Unknown]
  - Pain [Unknown]
  - Emotional distress [Unknown]
  - Anxiety [Unknown]
  - Impaired quality of life [Unknown]
  - Discomfort [Unknown]
  - Ear congestion [Unknown]
  - Product use complaint [Unknown]
  - Tinnitus [Not Recovered/Not Resolved]
  - Balance disorder [Unknown]
  - Dizziness [Unknown]
  - Blood pressure systolic increased [Unknown]
  - Blood glucose increased [Unknown]
  - Decreased appetite [Unknown]
  - Diarrhoea [Unknown]
  - Dermatochalasis [Unknown]
  - Diarrhoea [Unknown]
  - Muscle spasms [Recovered/Resolved]
  - Presbyopia [Unknown]
  - Blood urea increased [Unknown]
  - Full blood count abnormal [Unknown]
  - High density lipoprotein decreased [Unknown]
  - Aortic aneurysm [Unknown]
  - Benign prostatic hyperplasia [Unknown]
  - Cerumen impaction [Unknown]
  - Diverticulum [Unknown]
  - Dysuria [Unknown]
  - Gastrooesophageal reflux disease [Unknown]
  - Insomnia [Unknown]
  - Type V hyperlipidaemia [Unknown]
  - Overweight [Unknown]
  - Bundle branch block right [Unknown]
  - Blood pressure increased [Unknown]
  - Nail bed bleeding [Unknown]
  - Platelet count decreased [Unknown]
  - Abdominal pain lower [Unknown]
  - Rhinorrhoea [Unknown]
  - Nausea [Unknown]
  - Dry mouth [Unknown]
  - Posture abnormal [Unknown]
  - Autophony [Recovered/Resolved]
  - High density lipoprotein decreased [Unknown]
  - Blood bilirubin increased [Unknown]
  - Blood thyroid stimulating hormone increased [Unknown]
  - Gait disturbance [Unknown]

NARRATIVE: CASE EVENT DATE: 20220819
